FAERS Safety Report 5058351-6 (Version None)
Quarter: 2006Q3

REPORT INFORMATION
  Report Type: 
  Country: None (occurrence: None)
  Receive Date: 20060721
  Receipt Date: 20060713
  Transmission Date: 20061208
  Serious: Yes (Hospitalization, Other)
  Sender: FDA-Public Use
  Company Number: PHEH2006US09048

PATIENT
  Age: 57 Year
  Sex: Male

DRUGS (3)
  1. COMTAN [Suspect]
     Indication: PARKINSON'S DISEASE
  2. SELEGILINE HCL [Concomitant]
     Indication: PARKINSON'S DISEASE
     Dates: end: 20060613
  3. SINEMET [Concomitant]
     Dosage: 200 MG, TID
     Route: 048

REACTIONS (16)
  - BLISTER [None]
  - BLOOD IMMUNOGLOBULIN E INCREASED [None]
  - CHROMATURIA [None]
  - DYSPNOEA [None]
  - EOSINOPHIL COUNT INCREASED [None]
  - EOSINOPHILIC PNEUMONIA [None]
  - FEELING HOT [None]
  - HYPERHIDROSIS [None]
  - MALAISE [None]
  - MUSCULAR WEAKNESS [None]
  - PNEUMONIA [None]
  - PNEUMOTHORAX TRAUMATIC [None]
  - PYREXIA [None]
  - SKIN TEST POSITIVE [None]
  - SPUTUM ABNORMAL [None]
  - URINE ODOUR ABNORMAL [None]
